FAERS Safety Report 4864015-1 (Version None)
Quarter: 2005Q4

REPORT INFORMATION
  Report Type: 
  Country: None (occurrence: None)
  Receive Date: 20051219
  Receipt Date: 20051205
  Transmission Date: 20060501
  Serious: Yes (Hospitalization, Other)
  Sender: FDA-Public Use
  Company Number: 2005163233

PATIENT
  Age: 74 Year
  Sex: Male
  Weight: 80 kg

DRUGS (8)
  1. CAMPTOSAR [Suspect]
     Indication: METASTASES TO LIVER
     Dosage: 160 MG, INTRAVENOUS
     Route: 042
  2. FLUOROURACIL [Suspect]
     Indication: METASTASES TO LIVER
     Dosage: 4000 MG
  3. SODIUM FOLINATE (SODIUM FOLINATE) [Suspect]
     Indication: METASTASES TO LIVER
     Dosage: 1000 MG
  4. CELLCEPT [Concomitant]
  5. PREDNI (PREDNISOLONE ACETATE) [Concomitant]
  6. PANTOPRAZOLE SODIUM [Concomitant]
  7. REKAWAN (POTASSIUM CHLORIDE) [Concomitant]
  8. MARCUMAR [Concomitant]

REACTIONS (9)
  - ACTIVATED PARTIAL THROMBOPLASTIN TIME PROLONGED [None]
  - DEHYDRATION [None]
  - DIARRHOEA [None]
  - GENERAL PHYSICAL CONDITION ABNORMAL [None]
  - HYPOKALAEMIA [None]
  - NAUSEA [None]
  - PROTHROMBIN TIME PROLONGED [None]
  - VOMITING [None]
  - WEIGHT DECREASED [None]
